FAERS Safety Report 6376112-2 (Version None)
Quarter: 2009Q3

REPORT INFORMATION
  Report Type: 
  Country: None (occurrence: None)
  Receive Date: 20090918
  Receipt Date: 20090907
  Transmission Date: 20100115
  Serious: Yes (Disabling)
  Sender: FDA-Public Use
  Company Number: 376413

PATIENT
  Age: 50 Year
  Sex: Female

DRUGS (2)
  1. GENTAMICIN [Suspect]
     Dosage: 4 DOSAGE FORM,
     Dates: start: 20090601
  2. (CHEMOTHERAPEUTICS NOS) [Concomitant]

REACTIONS (1)
  - GAIT DISTURBANCE [None]
